FAERS Safety Report 6847626-3 (Version None)
Quarter: 2010Q3

REPORT INFORMATION
  Report Type: 
  Country: None (occurrence: None)
  Receive Date: 20100716
  Receipt Date: 20100705
  Transmission Date: 20110219
  Serious: Yes (Hospitalization)
  Sender: FDA-Public Use
  Company Number: PHHY2010FR44925

PATIENT
  Sex: Female

DRUGS (4)
  1. TEGRETOL [Suspect]
     Indication: BIPOLAR I DISORDER
     Dosage: 200 MG, QD
     Route: 048
  2. LITHIUM CARBONATE [Interacting]
     Indication: BIPOLAR I DISORDER
     Dosage: 500 MG, QD
     Route: 048
  3. AMITRIPTYLINE HCL [Concomitant]
     Indication: BIPOLAR I DISORDER
     Dosage: 150 MG, QD
     Route: 048
  4. TRIHEXYPHENIDYL HCL [Concomitant]
     Dosage: 2 DF, QD
     Route: 048

REACTIONS (13)
  - ANTIPSYCHOTIC DRUG LEVEL ABOVE THERAPEUTIC [None]
  - BLOOD CALCIUM INCREASED [None]
  - BLOOD CREATININE INCREASED [None]
  - BLOOD SODIUM INCREASED [None]
  - CONDITION AGGRAVATED [None]
  - CONFUSIONAL STATE [None]
  - DEHYDRATION [None]
  - DISORIENTATION [None]
  - HAEMOCONCENTRATION [None]
  - HYPERPARATHYROIDISM PRIMARY [None]
  - PARATHYROID TUMOUR BENIGN [None]
  - RENAL FAILURE ACUTE [None]
  - THYROID NEOPLASM [None]
